FAERS Safety Report 5470850-1 (Version None)
Quarter: 2007Q3

REPORT INFORMATION
  Report Type: 
  Country: None (occurrence: None)
  Receive Date: 20070925
  Receipt Date: 20070911
  Transmission Date: 20080115
  Serious: Yes (Other)
  Sender: FDA-Public Use
  Company Number: 161448ISR

PATIENT
  Sex: Male

DRUGS (1)
  1. LISINOPRIL [Suspect]
     Dosage: (2.5 MG)
     Route: 048
     Dates: start: 20061027, end: 20070731

REACTIONS (2)
  - PROCTALGIA [None]
  - PSORIASIS [None]
